FAERS Safety Report 9664943 (Version 1)
Quarter: 2013Q4

REPORT INFORMATION
  Report Type: Spontaneous
  Country: CA (occurrence: CA)
  Receive Date: 20131101
  Receipt Date: 20131101
  Transmission Date: 20140711
  Serious: Yes (Death, Other)
  Sender: FDA-Public Use
  Company Number: CA-LUNDBECK-DKLU1094937

PATIENT
  Age: 27 Year
  Sex: Female

DRUGS (12)
  1. ONFI [Suspect]
     Indication: PRODUCT USED FOR UNKNOWN INDICATION
  2. VALPROIC ACID [Suspect]
     Indication: PRODUCT USED FOR UNKNOWN INDICATION
  3. MIDAZOLAM [Suspect]
     Indication: PRODUCT USED FOR UNKNOWN INDICATION
     Route: 050
  4. LEVETIRACETAM [Suspect]
     Indication: PRODUCT USED FOR UNKNOWN INDICATION
  5. TOPIRAMATE [Suspect]
     Indication: PRODUCT USED FOR UNKNOWN INDICATION
  6. OXCARBAZEPINE [Suspect]
     Indication: PRODUCT USED FOR UNKNOWN INDICATION
  7. KETAMINE HYDROCHLORIDE [Suspect]
     Indication: PRODUCT USED FOR UNKNOWN INDICATION
     Route: 050
  8. LACOSAMIDE [Suspect]
     Indication: PRODUCT USED FOR UNKNOWN INDICATION
  9. IMMUNE SERUM GLOBULIN [Suspect]
     Indication: PRODUCT USED FOR UNKNOWN INDICATION
  10. ISOFLURANE [Suspect]
     Indication: PRODUCT USED FOR UNKNOWN INDICATION
  11. MAGNESIUM [Suspect]
     Indication: PRODUCT USED FOR UNKNOWN INDICATION
  12. PROPOFOL [Suspect]
     Indication: PRODUCT USED FOR UNKNOWN INDICATION

REACTIONS (6)
  - Death [Fatal]
  - Arrhythmia [Recovered/Resolved]
  - Metabolic acidosis [Recovered/Resolved]
  - Gene mutation [Unknown]
  - Propofol infusion syndrome [Recovered/Resolved]
  - Shock [Recovered/Resolved]
